FAERS Safety Report 10197797 (Version 1)
Quarter: 2014Q2

REPORT INFORMATION
  Report Type: Spontaneous
  Country: GB (occurrence: GB)
  Receive Date: 20140527
  Receipt Date: 20140527
  Transmission Date: 20141212
  Serious: Yes (Life-Threatening, Hospitalization, Other)
  Sender: FDA-Public Use
  Company Number: GB-BRISTOL-MYERS SQUIBB COMPANY-20769071

PATIENT
  Age: 69 Year
  Sex: Male
  Weight: 75 kg

DRUGS (7)
  1. APIXABAN [Suspect]
     Indication: THROMBOSIS PROPHYLAXIS
     Route: 048
     Dates: start: 20140404, end: 20140503
  2. PARACETAMOL [Concomitant]
  3. SALBUTAMOL [Concomitant]
  4. SERETIDE [Concomitant]
  5. TIOTROPIUM BROMIDE [Concomitant]
  6. TRAMADOL [Concomitant]
  7. OMEPRAZOLE [Concomitant]
     Route: 042

REACTIONS (4)
  - Small intestinal haemorrhage [Recovering/Resolving]
  - Rectal haemorrhage [Recovering/Resolving]
  - Circulatory collapse [Recovering/Resolving]
  - Duodenal ulcer [Recovering/Resolving]
